FAERS Safety Report 8191989-6 (Version None)
Quarter: 2012Q1

REPORT INFORMATION
  Report Type: 
  Country: None (occurrence: None)
  Receive Date: 20120307
  Receipt Date: 20120301
  Transmission Date: 20120608
  Serious: Yes (Other)
  Sender: FDA-Public Use
  Company Number: PHEH2011US05638

PATIENT
  Sex: Female

DRUGS (7)
  1. DIOVAN HCT [Suspect]
  2. CATAPRES [Concomitant]
     Dosage: 0.1 MG,  (TWICE DAY)
  3. TYLENOL W/ CODEINE [Concomitant]
  4. DIOVAN HCT [Suspect]
     Indication: BLOOD PRESSURE
     Dosage: 320 MG VALS/ 25 MG HCT, PER DAY
     Route: 048
  5. ASPIRIN [Concomitant]
     Dosage: 81 MG,
  6. LOTREL [Concomitant]
     Dosage: 5/20 MG PER DAY
  7. AMLODIPINE [Concomitant]
     Dosage: ONCE DAY

REACTIONS (2)
  - RENAL DISORDER [None]
  - THROMBOSIS [None]
